FAERS Safety Report 13167359 (Version 1)
Quarter: 2017Q1

REPORT INFORMATION
  Report Type: Spontaneous
  Country: CA (occurrence: CA)
  Receive Date: 20170131
  Receipt Date: 20170131
  Transmission Date: 20170428
  Serious: Yes (Hospitalization)
  Sender: FDA-Public Use
  Company Number: CA-GLAXOSMITHKLINE-CA2016GSK175363

PATIENT
  Age: 54 Year
  Sex: Female

DRUGS (4)
  1. NUCALA [Suspect]
     Active Substance: MEPOLIZUMAB
     Indication: ASTHMA
     Dosage: 100 MG, Z
     Route: 042
     Dates: start: 20161004
  2. NUCALA [Suspect]
     Active Substance: MEPOLIZUMAB
     Dosage: 100 MG, Z
     Dates: start: 20170125
  3. NUCALA [Suspect]
     Active Substance: MEPOLIZUMAB
     Dosage: 100 MG, Z
     Route: 042
     Dates: start: 20161102
  4. NUCALA [Suspect]
     Active Substance: MEPOLIZUMAB
     Dosage: 100 MG, Z
     Route: 042
     Dates: start: 20161228

REACTIONS (7)
  - Nausea [Recovered/Resolved]
  - Application site nodule [Unknown]
  - Asthma [Unknown]
  - Injection site pruritus [Unknown]
  - Injection site erythema [Unknown]
  - Chronic obstructive pulmonary disease [Unknown]
  - Ear infection [Recovered/Resolved]

NARRATIVE: CASE EVENT DATE: 201610
